FAERS Safety Report 9137400 (Version 1)
Quarter: 2013Q1

REPORT INFORMATION
  Report Type: Spontaneous
  Country: US (occurrence: US)
  Receive Date: 20130219
  Receipt Date: 20130219
  Transmission Date: 20140127
  Serious: No
  Sender: FDA-Public Use
  Company Number: US-BRISTOL-MYERS SQUIBB COMPANY-16815276

PATIENT
  Age: 82 Year
  Sex: Female
  Weight: 70.75 kg

DRUGS (7)
  1. ABATACEPT SUBQ INJECTION 125MG/ML [Suspect]
     Dosage: INTER ON 25JUL12
     Route: 058
  2. ATENOLOL [Concomitant]
  3. FOLIC ACID [Concomitant]
  4. METHOTREXATE TABS [Concomitant]
     Dosage: MTX 2.5 MG 8 TABLETS ON SAT
  5. AMBIEN [Concomitant]
  6. WARFARIN [Concomitant]
  7. SOTALOL [Concomitant]

REACTIONS (1)
  - Drug dose omission [Unknown]
